FAERS Safety Report 20775633 (Version 2)
Quarter: 2023Q2

REPORT INFORMATION
  Report Type: Report from Study
  Country: FR (occurrence: FR)
  Receive Date: 20220502
  Receipt Date: 20230406
  Transmission Date: 20230722
  Serious: Yes (Disabling)
  Sender: FDA-Public Use
  Company Number: FR-TAKEDA-2022TUS028497

PATIENT
  Age: 26 Year
  Sex: Male

DRUGS (11)
  1. TEDUGLUTIDE [Suspect]
     Active Substance: TEDUGLUTIDE
     Indication: Short-bowel syndrome
     Dosage: 2.2 MILLIGRAM, QD
     Route: 042
     Dates: start: 20170510, end: 20170726
  2. TEDUGLUTIDE [Suspect]
     Active Substance: TEDUGLUTIDE
     Indication: Short-bowel syndrome
     Dosage: 2.2 MILLIGRAM, QD
     Route: 042
     Dates: start: 20170510, end: 20170726
  3. TEDUGLUTIDE [Suspect]
     Active Substance: TEDUGLUTIDE
     Indication: Short-bowel syndrome
     Dosage: 2.2 MILLIGRAM, QD
     Route: 042
     Dates: start: 20170510, end: 20170726
  4. TEDUGLUTIDE [Suspect]
     Active Substance: TEDUGLUTIDE
     Indication: Short-bowel syndrome
     Dosage: 2.2 MILLIGRAM, QD
     Route: 042
     Dates: start: 20170510, end: 20170726
  5. TEDUGLUTIDE [Suspect]
     Active Substance: TEDUGLUTIDE
     Dosage: 2.2 MILLIGRAM, QD
     Route: 042
     Dates: start: 20170727
  6. TEDUGLUTIDE [Suspect]
     Active Substance: TEDUGLUTIDE
     Dosage: 2.2 MILLIGRAM, QD
     Route: 042
     Dates: start: 20170727
  7. TEDUGLUTIDE [Suspect]
     Active Substance: TEDUGLUTIDE
     Dosage: 2.2 MILLIGRAM, QD
     Route: 042
     Dates: start: 20170727
  8. TEDUGLUTIDE [Suspect]
     Active Substance: TEDUGLUTIDE
     Dosage: 2.2 MILLIGRAM, QD
     Route: 042
     Dates: start: 20170727
  9. ESOMEPRAZOLE [Concomitant]
     Active Substance: ESOMEPRAZOLE
     Indication: Prophylaxis
     Dosage: 40 MILLIGRAM, QD
     Route: 048
     Dates: start: 20201014
  10. GENTAMICIN [Concomitant]
     Active Substance: GENTAMICIN
     Indication: Prophylaxis
     Dosage: 40 MILLIGRAM, BID
     Route: 048
     Dates: start: 20201014, end: 20201017
  11. URSODIOL [Concomitant]
     Active Substance: URSODIOL
     Indication: Cholestasis
     Dosage: 500 MILLIGRAM, QD
     Route: 048
     Dates: start: 201910

REACTIONS (1)
  - Osteoporosis [Recovered/Resolved with Sequelae]

NARRATIVE: CASE EVENT DATE: 20210715
